FAERS Safety Report 8854452 (Version 2)
Quarter: 2012Q4

REPORT INFORMATION
  Report Type: 
  Country: JP (occurrence: JP)
  Receive Date: 20121023
  Receipt Date: 20121106
  Transmission Date: 20130627
  Serious: Yes (Hospitalization)
  Sender: FDA-Public Use
  Company Number: JP-PFIZER INC-2012253477

PATIENT
  Age: 35 Year
  Sex: Female

DRUGS (3)
  1. CELECOX [Suspect]
     Indication: JOINT SWELLING
     Dosage: 200 mg, 2x/day
     Route: 048
     Dates: start: 20120919, end: 20120927
  2. CELECOX [Suspect]
     Indication: ARTHRALGIA
     Dosage: 100 mg, 2x/day
     Route: 048
     Dates: start: 20120928, end: 20120929
  3. SELBEX [Suspect]
     Indication: GASTRITIS PROPHYLAXIS
     Dosage: 50 mg, 2x/day
     Route: 048
     Dates: start: 20120919, end: 20120929

REACTIONS (1)
  - Toxic skin eruption [Recovering/Resolving]
